FAERS Safety Report 9353926 (Version 1)
Quarter: 2013Q2

REPORT INFORMATION
  Report Type: Spontaneous
  Country: ES (occurrence: GB)
  Receive Date: 20130618
  Receipt Date: 20130618
  Transmission Date: 20140414
  Serious: Yes (Life-Threatening)
  Sender: FDA-Public Use
  Company Number: GB-FRI-1000046001

PATIENT
  Age: 72 Year
  Sex: Female

DRUGS (5)
  1. ACLIDINIUM [Suspect]
     Dosage: 2 DF
     Route: 055
     Dates: start: 20130508, end: 20130516
  2. BENDROFLUMETHIAZIDE [Concomitant]
     Dosage: 1 DF
     Route: 048
  3. DOXYCYCLINE [Concomitant]
     Dosage: 100 MG
     Route: 048
  4. PARACETAMOL [Concomitant]
     Route: 048
  5. SERETIDE [Concomitant]
     Dosage: 4 DF
     Route: 055

REACTIONS (3)
  - Neuralgia [Recovering/Resolving]
  - Chest discomfort [Recovering/Resolving]
  - Dysuria [Recovering/Resolving]
